FAERS Safety Report 24611974 (Version 2)
Quarter: 2024Q4

REPORT INFORMATION
  Report Type: Spontaneous
  Country: IT (occurrence: IT)
  Receive Date: 20241113
  Receipt Date: 20241206
  Transmission Date: 20250114
  Serious: Yes (Congenital Anomaly, Other)
  Sender: VIIV
  Company Number: IT-ViiV Healthcare-IT2024GSK138484

PATIENT

DRUGS (1)
  1. ZIDOVUDINE [Suspect]
     Active Substance: ZIDOVUDINE
     Indication: Prophylaxis against HIV infection
     Dosage: UNK
     Route: 064

REACTIONS (2)
  - CDKL5 deficiency disorder [Unknown]
  - Foetal exposure during pregnancy [Unknown]
